FAERS Safety Report 5285516-0 (Version None)
Quarter: 2007Q1

REPORT INFORMATION
  Report Type: 
  Country: None (occurrence: None)
  Receive Date: 20070328
  Receipt Date: 20070316
  Transmission Date: 20070707
  Serious: Yes (Hospitalization, Other)
  Sender: FDA-Public Use
  Company Number: VER_0049_2007

PATIENT
  Age: 30 Year
  Sex: Male

DRUGS (3)
  1. EPINEPHRINE [Suspect]
     Indication: FOOD ALLERGY
     Dosage: DF UNK SC
     Route: 058
  2. EPINEPHRINE [Suspect]
     Indication: URTICARIA
     Dosage: DF UNK SC
     Route: 058
  3. EPINEPHRINE [Suspect]
     Indication: WHEEZING
     Dosage: DF UNK SC
     Route: 058

REACTIONS (2)
  - ARTERIOSPASM CORONARY [None]
  - ELECTROCARDIOGRAM CHANGE [None]
